FAERS Safety Report 14194955 (Version 31)
Quarter: 2018Q3

REPORT INFORMATION
  Report Type: Spontaneous
  Country: CZ (occurrence: CZ)
  Receive Date: 20171116
  Receipt Date: 20180820
  Transmission Date: 20181010
  Serious: Yes (Life-Threatening, Hospitalization, Other)
  Sender: FDA-Public Use
  Company Number: CZ-PFIZER INC-2017486995

PATIENT
  Age: 82 Year
  Sex: Female

DRUGS (40)
  1. PHENYTOIN SODIUM. [Suspect]
     Active Substance: PHENYTOIN SODIUM
     Indication: PARTIAL SEIZURES
  2. METAMIZOLE [Suspect]
     Active Substance: METAMIZOLE
     Indication: PAIN
     Dosage: UNK
     Route: 065
  3. VALPROATE [Suspect]
     Active Substance: VALPROIC ACID
     Indication: GENERALISED TONIC-CLONIC SEIZURE
     Dosage: 30 MG/KG, UNK
     Route: 042
  4. VALPROATE [Suspect]
     Active Substance: VALPROIC ACID
     Indication: SEIZURE
     Dosage: UNK
     Route: 065
  5. CYNT [Concomitant]
     Dosage: UNK
     Route: 065
  6. EUTHYROX [Concomitant]
     Active Substance: LEVOTHYROXINE SODIUM
     Dosage: UNK
     Route: 065
  7. AMOXICILLIN. [Suspect]
     Active Substance: AMOXICILLIN
     Dosage: UNK
     Route: 048
  8. LISALGIL [Suspect]
     Active Substance: METAMIZOLE SODIUM
     Indication: PAIN
     Dosage: UNK
     Route: 065
  9. VALPROATE [Suspect]
     Active Substance: VALPROIC ACID
     Indication: STATUS EPILEPTICUS
     Dosage: UNK
     Route: 065
  10. GODASAL [Concomitant]
     Active Substance: ASPIRIN\GLYCINE
     Dosage: UNK
     Route: 065
  11. LOKREN [Concomitant]
     Active Substance: BETAXOLOL HYDROCHLORIDE
     Dosage: UNK
     Route: 065
  12. IBUPROFEN. [Suspect]
     Active Substance: IBUPROFEN
     Indication: ANALGESIC THERAPY
  13. LEVETIRACETAM. [Suspect]
     Active Substance: LEVETIRACETAM
     Indication: GENERALISED TONIC-CLONIC SEIZURE
     Dosage: 40 MG/KG, UNK (3000MG/DAY)
     Route: 042
  14. LEVETIRACETAM. [Suspect]
     Active Substance: LEVETIRACETAM
     Indication: SEIZURE
  15. DIAZEPAM. [Suspect]
     Active Substance: DIAZEPAM
     Indication: PARTIAL SEIZURES
     Dosage: UNK
     Route: 042
  16. VALPROIC ACID. [Suspect]
     Active Substance: VALPROIC ACID
     Indication: SEIZURE
  17. KAPIDIN [Concomitant]
     Active Substance: LERCANIDIPINE HYDROCHLORIDE
     Dosage: UNK
     Route: 065
  18. EUTHYROX [Concomitant]
     Active Substance: LEVOTHYROXINE SODIUM
     Dosage: UNK
     Route: 065
  19. AMOXICILLIN. [Suspect]
     Active Substance: AMOXICILLIN
     Indication: PNEUMONIA
     Dosage: UNK
     Route: 048
  20. DIAZEPAM. [Suspect]
     Active Substance: DIAZEPAM
     Indication: HYPERTENSION
  21. DIAZEPAM. [Suspect]
     Active Substance: DIAZEPAM
     Indication: GENERALISED TONIC-CLONIC SEIZURE
  22. PARACETAMOL [Suspect]
     Active Substance: ACETAMINOPHEN
     Indication: PAIN
     Dosage: UNK
     Route: 048
  23. GLURENORM [Concomitant]
     Active Substance: GLIQUIDONE
     Dosage: UNK
     Route: 065
  24. MILURIT [Suspect]
     Active Substance: ALLOPURINOL
     Indication: GOUT
     Dosage: UNK
     Route: 048
  25. CEFTRIAXONE SODIUM. [Suspect]
     Active Substance: CEFTRIAXONE SODIUM
     Indication: PNEUMONIA
     Dosage: UNK
     Route: 048
  26. DIAZEPAM. [Suspect]
     Active Substance: DIAZEPAM
     Indication: SEIZURE
  27. PROPOFOL. [Suspect]
     Active Substance: PROPOFOL
     Indication: GENERALISED TONIC-CLONIC SEIZURE
     Dosage: UNK
     Route: 065
  28. PROPOFOL. [Suspect]
     Active Substance: PROPOFOL
     Indication: EPILEPSY
  29. TRITACE [Concomitant]
     Active Substance: RAMIPRIL
     Dosage: UNK
     Route: 065
  30. FLUCONAZOLE. [Suspect]
     Active Substance: FLUCONAZOLE
     Indication: INFECTION
     Dosage: UNK
     Route: 048
  31. PHENYTOIN SODIUM. [Suspect]
     Active Substance: PHENYTOIN SODIUM
     Indication: SEIZURE
  32. PARACETAMOL [Suspect]
     Active Substance: ACETAMINOPHEN
     Indication: ANALGESIC THERAPY
  33. PROPOFOL. [Suspect]
     Active Substance: PROPOFOL
     Indication: SEIZURE
  34. VALPROIC ACID. [Suspect]
     Active Substance: VALPROIC ACID
     Indication: GENERALISED TONIC-CLONIC SEIZURE
     Dosage: 30 MG/KG, 1X/DAY
     Route: 042
  35. VALPROIC ACID. [Suspect]
     Active Substance: VALPROIC ACID
     Indication: PARTIAL SEIZURES
  36. IBUPROFEN. [Suspect]
     Active Substance: IBUPROFEN
     Indication: PAIN
     Dosage: UNK
     Route: 048
  37. LEVETIRACETAM. [Suspect]
     Active Substance: LEVETIRACETAM
     Indication: PARTIAL SEIZURES
     Dosage: 3000 MG, DAILY
     Route: 042
  38. PHENYTOIN SODIUM. [Suspect]
     Active Substance: PHENYTOIN SODIUM
     Indication: GENERALISED TONIC-CLONIC SEIZURE
     Dosage: 20 MG/KG, 1X/DAY
     Route: 042
  39. VASILIP [Concomitant]
     Active Substance: SIMVASTATIN
     Dosage: UNK
     Route: 065
  40. GLYCINE. [Concomitant]
     Active Substance: GLYCINE
     Dosage: UNK
     Route: 065

REACTIONS (7)
  - Stevens-Johnson syndrome [Recovered/Resolved with Sequelae]
  - Pneumonia [Recovering/Resolving]
  - Sopor [Recovering/Resolving]
  - Status epilepticus [Recovering/Resolving]
  - Drug effect incomplete [Unknown]
  - Rash [Recovered/Resolved with Sequelae]
  - Laceration [Recovered/Resolved with Sequelae]
